FAERS Safety Report 7002827-9 (Version None)
Quarter: 2010Q3

REPORT INFORMATION
  Report Type: 
  Country: None (occurrence: None)
  Receive Date: 20100920
  Receipt Date: 20100910
  Transmission Date: 20110219
  Serious: Yes (Death, Other)
  Sender: FDA-Public Use
  Company Number: US-BAXTER-2010BH023428

PATIENT
  Age: 50 Year
  Sex: Female

DRUGS (6)
  1. DIANEAL [Suspect]
     Indication: PERITONEAL DIALYSIS
     Route: 033
     Dates: start: 20100217
  2. DIANEAL [Suspect]
     Route: 033
     Dates: start: 20100217
  3. DIANEAL [Suspect]
     Route: 033
     Dates: start: 20100217
  4. DIANEAL [Suspect]
     Route: 033
     Dates: start: 20100217
  5. DIANEAL [Suspect]
     Indication: PERITONEAL DIALYSIS
     Route: 033
     Dates: start: 20100910
  6. DIANEAL [Suspect]
     Route: 033
     Dates: start: 20100910

REACTIONS (2)
  - ABDOMINAL PAIN [None]
  - CARDIAC ARREST [None]
